FAERS Safety Report 6833604-7 (Version None)
Quarter: 2010Q3

REPORT INFORMATION
  Report Type: 
  Country: None (occurrence: None)
  Receive Date: 20100712
  Receipt Date: 20070330
  Transmission Date: 20110219
  Serious: No
  Sender: FDA-Public Use
  Company Number: US-PFIZER INC-2007026319

PATIENT
  Sex: Male
  Weight: 92.08 kg

DRUGS (7)
  1. CHANTIX [Suspect]
     Indication: SMOKING CESSATION THERAPY
     Dates: start: 20070321
  2. RISPERDAL [Concomitant]
  3. ALPRAZOLAM [Concomitant]
  4. LEXAPRO [Concomitant]
  5. ZONEGRAN [Concomitant]
  6. ADVAIR DISKUS 100/50 [Concomitant]
  7. ALBUTEROL [Concomitant]

REACTIONS (6)
  - ABNORMAL DREAMS [None]
  - FATIGUE [None]
  - FLATULENCE [None]
  - MIDDLE INSOMNIA [None]
  - NAUSEA [None]
  - POOR QUALITY SLEEP [None]
